FAERS Safety Report 4302429-9 (Version None)
Quarter: 2004Q1

REPORT INFORMATION
  Report Type: 
  Country: None (occurrence: None)
  Receive Date: 20040223
  Receipt Date: 20040112
  Transmission Date: 20041129
  Serious: Yes (Death)
  Sender: FDA-Public Use
  Company Number: 000691

PATIENT
  Age: 34 Year
  Sex: Female

DRUGS (3)
  1. KARIVA [Suspect]
     Indication: MENORRHAGIA
     Dates: start: 20020819
  2. KARIVA [Suspect]
     Indication: MENSTRUATION IRREGULAR
     Dates: start: 20020819
  3. KARIVA [Suspect]
     Indication: UTERINE LEIOMYOMA
     Dates: start: 20020819

REACTIONS (2)
  - PULMONARY EMBOLISM [None]
  - THROMBOSIS [None]
